FAERS Safety Report 11240136 (Version 1)
Quarter: 2015Q3

REPORT INFORMATION
  Report Type: Report from Study
  Country: CZ (occurrence: CZ)
  Receive Date: 20150706
  Receipt Date: 20150706
  Transmission Date: 20151125
  Serious: Yes (Life-Threatening, Hospitalization, Other)
  Sender: FDA-Public Use
  Company Number: CZ-BAYER-2015-277566

PATIENT
  Age: 39 Year
  Sex: Female

DRUGS (1)
  1. MIRENA [Suspect]
     Active Substance: LEVONORGESTREL
     Indication: CONTRACEPTION
     Dosage: 20 MCG/24HR, CONT
     Route: 015
     Dates: start: 20140121, end: 20150314

REACTIONS (10)
  - Genital haemorrhage [None]
  - Ectopic pregnancy with contraceptive device [Recovered/Resolved]
  - Abdominal pain lower [Recovered/Resolved]
  - Limb discomfort [None]
  - Chest pain [Recovered/Resolved]
  - Drug ineffective [None]
  - Anaemia [None]
  - Dizziness [Recovered/Resolved]
  - Deep vein thrombosis [None]
  - Pain in extremity [None]

NARRATIVE: CASE EVENT DATE: 201401
